FAERS Safety Report 8343596-X (Version None)
Quarter: 2012Q2

REPORT INFORMATION
  Report Type: 
  Country: None (occurrence: None)
  Receive Date: 20120504
  Receipt Date: 20120420
  Transmission Date: 20120825
  Serious: No
  Sender: FDA-Public Use
  Company Number: SPI201200086

PATIENT
  Age: 51 Year
  Sex: Female

DRUGS (1)
  1. AMITIZA [Suspect]
     Indication: CONSTIPATION
     Dosage: 24 MCG, BID, ORAL
     Route: 048

REACTIONS (2)
  - DYSPNOEA [None]
  - CHEST DISCOMFORT [None]
